FAERS Safety Report 12995312 (Version 1)
Quarter: 2016Q4

REPORT INFORMATION
  Report Type: Report from Study
  Country: US (occurrence: US)
  Receive Date: 20161202
  Receipt Date: 20161202
  Transmission Date: 20170207
  Serious: Yes (Congenital Anomaly, Other)
  Sender: FDA-Public Use
  Company Number: US-TEVA-552227USA

PATIENT
  Age: 1 Month
  Sex: Female
  Weight: 10.4 kg

DRUGS (13)
  1. SYNTHROID [Concomitant]
     Active Substance: LEVOTHYROXINE SODIUM
     Indication: HYPOTHYROIDISM
     Dosage: 125 MICROGRAM DAILY;
     Dates: start: 201504
  2. PRENATAL VITAMINS [Concomitant]
     Active Substance: VITAMINS
     Indication: PREGNANCY
     Dates: start: 201504
  3. ASTELIN [Concomitant]
     Active Substance: AZELASTINE HYDROCHLORIDE
     Indication: HYPERSENSITIVITY
     Dosage: 274 MICROGRAM DAILY;
  4. MAGNESIUM [Concomitant]
     Active Substance: MAGNESIUM
     Indication: SUPPLEMENTATION THERAPY
  5. VIIBRYD [Concomitant]
     Active Substance: VILAZODONE HYDROCHLORIDE
     Indication: DEPRESSION
     Dosage: 40 MILLIGRAM DAILY;
  6. VIIBRYD [Concomitant]
     Active Substance: VILAZODONE HYDROCHLORIDE
     Indication: ANXIETY
  7. PROVIGIL [Suspect]
     Active Substance: MODAFINIL
     Dosage: 200 MILLIGRAM DAILY;
     Route: 064
     Dates: end: 20151101
  8. FLONASE [Concomitant]
     Active Substance: FLUTICASONE PROPIONATE
     Indication: HYPERSENSITIVITY
     Dosage: 100 MICROGRAM DAILY;
  9. ZANTAC [Concomitant]
     Active Substance: RANITIDINE HYDROCHLORIDE
     Indication: GASTROOESOPHAGEAL REFLUX DISEASE
     Dosage: 150  DAILY;
  10. OMEGA 3 [Concomitant]
     Active Substance: OMEGA-3 FATTY ACIDS
  11. OMEPRAZOLE. [Concomitant]
     Active Substance: OMEPRAZOLE
     Indication: ANTACID THERAPY
     Dosage: 20 MILLIGRAM DAILY;
  12. NASAL [Concomitant]
     Active Substance: OXYMETAZOLINE HYDROCHLORIDE
     Indication: HYPERSENSITIVITY
     Dosage: 274 MILLIGRAM DAILY;
  13. OMEGA 3 [Concomitant]
     Active Substance: OMEGA-3 FATTY ACIDS
     Indication: SUPPLEMENTATION THERAPY
     Dosage: 3900 MILLIGRAM DAILY;

REACTIONS (2)
  - Foetal exposure during pregnancy [Unknown]
  - Congenital inguinal hernia [Unknown]

NARRATIVE: CASE EVENT DATE: 20151215
